FAERS Safety Report 8010157-1 (Version None)
Quarter: 2011Q4

REPORT INFORMATION
  Report Type: 
  Country: None (occurrence: None)
  Receive Date: 20111228
  Receipt Date: 20111213
  Transmission Date: 20120403
  Serious: Yes (Other)
  Sender: FDA-Public Use
  Company Number: IT-MYLANLABS-2011S1025977

PATIENT
  Age: 82 Year
  Sex: Female

DRUGS (3)
  1. CIPROFLOXACIN [Suspect]
     Route: 065
  2. IBUPROFEN [Suspect]
     Route: 065
  3. CITALOPRAM HYDROBROMIDE [Suspect]
     Route: 065

REACTIONS (1)
  - TOXIC EPIDERMAL NECROLYSIS [None]
